FAERS Safety Report 7495746-5 (Version None)
Quarter: 2011Q2

REPORT INFORMATION
  Report Type: 
  Country: None (occurrence: None)
  Receive Date: 20110523
  Receipt Date: 20110509
  Transmission Date: 20111010
  Serious: Yes (Hospitalization, Other)
  Sender: FDA-Public Use
  Company Number: US-ELI_LILLY_AND_COMPANY-US201105003698

PATIENT
  Age: 18 Year
  Sex: Female

DRUGS (2)
  1. OLANZAPINE [Suspect]
     Indication: BIPOLAR DISORDER
     Dosage: 10 MG, QD
  2. SERTRALINE HYDROCHLORIDE [Concomitant]
     Indication: BIPOLAR DISORDER

REACTIONS (2)
  - CLOSTRIDIUM DIFFICILE COLITIS [None]
  - PANCREATITIS [None]
